FAERS Safety Report 9101576 (Version 1)
Quarter: 2013Q1

REPORT INFORMATION
  Report Type: Spontaneous
  Country: US (occurrence: None)
  Receive Date: 20130220
  Receipt Date: 20130220
  Transmission Date: 20140127
  Serious: Yes (Other)
  Sender: FDA-Public Use
  Company Number: None

PATIENT
  Age: 38 Year
  Sex: Female

DRUGS (1)
  1. METHOTREXATE [Suspect]
     Indication: RHEUMATOID ARTHRITIS
     Dosage: 6 MG   ONCE WEEKLY  PO?08/06/2012  --  02/03/2013
     Route: 048
     Dates: start: 20120806, end: 20130203

REACTIONS (3)
  - Pregnancy [None]
  - Treatment noncompliance [None]
  - Exposure during pregnancy [None]
